FAERS Safety Report 9900153 (Version 3)
Quarter: 2014Q1

REPORT INFORMATION
  Report Type: Report from Study
  Country: JP (occurrence: JP)
  Receive Date: 20140214
  Receipt Date: 20140324
  Transmission Date: 20141002
  Serious: Yes (Death, Other)
  Sender: FDA-Public Use
  Company Number: JP-TAKEDA-2014TJP001511

PATIENT
  Age: 83 Year
  Sex: Female
  Weight: 66 kg

DRUGS (3)
  1. PIOGLITAZONE, GLIMEPIRIDE [Suspect]
     Indication: TYPE 2 DIABETES MELLITUS
     Dosage: 1 DF, QD
     Route: 048
     Dates: start: 20120607, end: 20130323
  2. ATORVASTATIN                       /01326102/ [Concomitant]
     Dosage: UNK
     Route: 048
  3. IMIDAPRIL HYDROCHLORIDE [Concomitant]
     Dosage: UNK
     Route: 048

REACTIONS (1)
  - Cerebrovascular accident [Fatal]
